FAERS Safety Report 19459012 (Version 1)
Quarter: 2021Q2

REPORT INFORMATION
  Report Type: Spontaneous
  Country: US (occurrence: US)
  Receive Date: 20210624
  Receipt Date: 20210624
  Transmission Date: 20210717
  Serious: Yes (Disabling, Other)
  Sender: FDA-Public Use
  Company Number: None

PATIENT
  Age: 48 Year
  Sex: Female

DRUGS (5)
  1. ZICAM  NASAL ALLCLEAR [Suspect]
     Active Substance: EUCALYPTOL\MENTHOL
     Indication: NASOPHARYNGITIS
     Dosage: ?          OTHER ROUTE:INTRANASAL?
     Dates: start: 20210619, end: 20210619
  2. PCN [Concomitant]
     Active Substance: PENICILLIN
  3. BENZONATATE. [Concomitant]
     Active Substance: BENZONATATE
  4. ZINC. [Concomitant]
     Active Substance: ZINC
  5. MUCINEX [Concomitant]
     Active Substance: GUAIFENESIN

REACTIONS (5)
  - Anosmia [None]
  - SARS-CoV-2 test false negative [None]
  - SARS-CoV-2 test negative [None]
  - Ageusia [None]
  - Parosmia [None]

NARRATIVE: CASE EVENT DATE: 20210619
